FAERS Safety Report 6189091 (Version 3)
Quarter: 2020Q3

REPORT INFORMATION
  Report Type: Report from Study
  Country: MX (occurrence: MX)
  Receive Date: 20061128
  Receipt Date: 20070706
  Transmission Date: 20201104
  Serious: Yes (Death, Hospitalization, Other)
  Sender: FDA-Public Use
  Company Number: HQWYE384222NOV06

PATIENT
  Age: 25 Year
  Sex: Male
  Weight: 62.1 kg

DRUGS (1)
  1. TACROLIMUS. [Suspect]
     Active Substance: TACROLIMUS
     Indication: PROPHYLAXIS AGAINST TRANSPLANT REJECTION
     Route: 048
     Dates: start: 20030926, end: 20061118

REACTIONS (2)
  - Septic shock [Fatal]
  - Pericarditis [Fatal]

NARRATIVE: CASE EVENT DATE: 20061116
